FAERS Safety Report 8010149-2 (Version None)
Quarter: 2011Q4

REPORT INFORMATION
  Report Type: 
  Country: None (occurrence: None)
  Receive Date: 20111221
  Receipt Date: 20111206
  Transmission Date: 20120403
  Serious: Yes (Hospitalization)
  Sender: FDA-Public Use
  Company Number: JPI-P-018626

PATIENT
  Age: 39 Year
  Sex: Female

DRUGS (5)
  1. XYREM [Suspect]
     Indication: NARCOLEPSY
     Dosage: 4.5 GM (2.25 GM, 2 IN 1 D), ORAL, (1ST DOSE 2.25 GM/2ND DOSE 3 GM), ORAL
     Route: 048
     Dates: start: 20111116
  2. XYREM [Suspect]
     Indication: NARCOLEPSY
     Dosage: 4.5 GM (2.25 GM, 2 IN 1 D), ORAL, (1ST DOSE 2.25 GM/2ND DOSE 3 GM), ORAL
     Route: 048
     Dates: start: 20080801
  3. PSYCHOSTIMULANTS (NOS) [Suspect]
     Indication: NARCOLEPSY
     Dates: end: 20111123
  4. MODAFINIL [Suspect]
     Indication: NARCOLEPSY
     Dates: end: 20111123
  5. VALPROIC ACID [Concomitant]

REACTIONS (3)
  - INSOMNIA [None]
  - NO THERAPEUTIC RESPONSE [None]
  - MANIA [None]
